FAERS Safety Report 19053328 (Version 1)
Quarter: 2021Q1

REPORT INFORMATION
  Report Type: Spontaneous
  Country: IN (occurrence: IN)
  Receive Date: 20210325
  Receipt Date: 20210325
  Transmission Date: 20210420
  Serious: Yes (Hospitalization, Other)
  Sender: FDA-Public Use
  Company Number: IN-JNJFOC-20210345729

PATIENT
  Age: 53 Year
  Sex: Male

DRUGS (2)
  1. SPORANOX [Suspect]
     Active Substance: ITRACONAZOLE
     Indication: DERMATOPHYTOSIS
     Route: 065
  2. AMLODIPINE [Concomitant]
     Active Substance: AMLODIPINE BESYLATE
     Indication: HYPERTENSION

REACTIONS (2)
  - Loss of consciousness [Unknown]
  - Hypotension [Unknown]
